FAERS Safety Report 18334873 (Version 1)
Quarter: 2020Q4

REPORT INFORMATION
  Report Type: Spontaneous
  Country: US (occurrence: US)
  Receive Date: 20201001
  Receipt Date: 20201001
  Transmission Date: 20210113
  Serious: Yes (Hospitalization, Other)
  Sender: FDA-Public Use
  Company Number: US-GLAXOSMITHKLINE-US2020191553

PATIENT
  Age: 70 Year
  Sex: Male

DRUGS (3)
  1. FLOMAX [Concomitant]
     Active Substance: TAMSULOSIN HYDROCHLORIDE
     Indication: PROSTATOMEGALY
     Dosage: UNK, QD
  2. AVODART [Suspect]
     Active Substance: DUTASTERIDE
     Indication: PROSTATOMEGALY
     Dosage: 0.5 MG, QD
  3. DUTASTERIDE. [Suspect]
     Active Substance: DUTASTERIDE
     Indication: PROSTATOMEGALY
     Dosage: UNK

REACTIONS (9)
  - Thrombosis [Unknown]
  - Erectile dysfunction [Not Recovered/Not Resolved]
  - Chest pain [Unknown]
  - Prescribed underdose [Unknown]
  - Product substitution issue [Recovered/Resolved]
  - Product dispensing error [Unknown]
  - Headache [Recovered/Resolved]
  - Myocardial infarction [Unknown]
  - Vascular graft [Unknown]

NARRATIVE: CASE EVENT DATE: 201604
